FAERS Safety Report 21532173 (Version 1)
Quarter: 2022Q4

REPORT INFORMATION
  Report Type: Spontaneous
  Country: US (occurrence: US)
  Receive Date: 20221101
  Receipt Date: 20221101
  Transmission Date: 20230113
  Serious: Yes (Other)
  Sender: FDA-Public Use
  Company Number: US-BoehringerIngelheim-2022-BI-199330

PATIENT
  Sex: Female

DRUGS (1)
  1. JARDIANCE [Suspect]
     Active Substance: EMPAGLIFLOZIN
     Indication: Product used for unknown indication
     Route: 065

REACTIONS (11)
  - Cardiac failure [Unknown]
  - COVID-19 [Unknown]
  - Memory impairment [Unknown]
  - Surgery [Unknown]
  - Diarrhoea [Unknown]
  - Cardiac disorder [Unknown]
  - Fall [Unknown]
  - Neuropathy peripheral [Unknown]
  - Aphonia [Unknown]
  - Decreased appetite [Unknown]
  - Dyscalculia [Unknown]
